FAERS Safety Report 8796576 (Version 2)
Quarter: 2012Q4

REPORT INFORMATION
  Report Type: 
  Country: SE (occurrence: SE)
  Receive Date: 20120919
  Receipt Date: 20121211
  Transmission Date: 20130627
  Serious: Yes (Other)
  Sender: FDA-Public Use
  Company Number: SE-ELI_LILLY_AND_COMPANY-SE201209003430

PATIENT
  Age: 59 Year
  Sex: Male

DRUGS (3)
  1. CIALIS [Suspect]
     Indication: ERECTILE DYSFUNCTION
     Dosage: 5 mg, qod
     Route: 048
  2. CIALIS [Suspect]
     Dosage: 5 mg, qd
     Dates: start: 20120503
  3. LOSEC [Concomitant]
     Dosage: 1 DF, unknown

REACTIONS (1)
  - Photopsia [Recovered/Resolved]
